FAERS Safety Report 11392154 (Version 1)
Quarter: 2015Q3

REPORT INFORMATION
  Report Type: Spontaneous
  Country: GB (occurrence: GB)
  Receive Date: 20150818
  Receipt Date: 20150818
  Transmission Date: 20151125
  Serious: Yes (Death)
  Sender: FDA-Public Use
  Company Number: GB-FRESENIUS KABI-FK201503938

PATIENT
  Age: 43 Year
  Sex: Male

DRUGS (1)
  1. PROPOFOL (MANUFACTURER UNKNOWN) [Suspect]
     Active Substance: PROPOFOL
     Indication: INSOMNIA
     Route: 065

REACTIONS (2)
  - Intentional product misuse [Fatal]
  - Accidental overdose [Fatal]

NARRATIVE: CASE EVENT DATE: 20150109
